FAERS Safety Report 6347905-2 (Version None)
Quarter: 2009Q3

REPORT INFORMATION
  Report Type: 
  Country: None (occurrence: None)
  Receive Date: 20090910
  Receipt Date: 20090828
  Transmission Date: 20100115
  Serious: Yes (Other)
  Sender: FDA-Public Use
  Company Number: US-PFIZER INC-2009261776

PATIENT

DRUGS (1)
  1. CHANTIX [Suspect]

REACTIONS (6)
  - ABNORMAL DREAMS [None]
  - CHEST PAIN [None]
  - CONSTIPATION [None]
  - DRUG INEFFECTIVE [None]
  - HAEMOPTYSIS [None]
  - LUNG DISORDER [None]
